FAERS Safety Report 5245025-1 (Version None)
Quarter: 2007Q1

REPORT INFORMATION
  Report Type: 
  Country: None (occurrence: None)
  Receive Date: 20070223
  Receipt Date: 20070219
  Transmission Date: 20070707
  Serious: Yes (Other)
  Sender: FDA-Public Use
  Company Number: GB-PFIZER INC-2006144454

PATIENT
  Sex: Male

DRUGS (13)
  1. PREDNISOLONE [Suspect]
  2. OMEPRAZOLE [Concomitant]
  3. LOSARTAN POTASSIUM [Concomitant]
  4. ALENDRONIC ACID [Concomitant]
  5. MYCOPHENOLATE SODIUM [Concomitant]
  6. NYSTATIN [Concomitant]
  7. FORCEVAL [Concomitant]
  8. ACETYLSALICYLIC ACID SRT [Concomitant]
  9. METFORMIN HCL [Concomitant]
  10. GLICLAZIDE [Concomitant]
  11. ZOPICLONE [Concomitant]
  12. ROSUVASTATIN [Concomitant]
  13. INSULIN [Concomitant]

REACTIONS (1)
  - CARDIAC PACEMAKER INSERTION [None]
